FAERS Safety Report 8044223-1 (Version None)
Quarter: 2012Q1

REPORT INFORMATION
  Report Type: 
  Country: None (occurrence: None)
  Receive Date: 20120111
  Receipt Date: 20120111
  Transmission Date: 20120608
  Serious: No
  Sender: FDA-Public Use
  Company Number: None

PATIENT
  Sex: Female

DRUGS (1)
  1. ENBREL [Suspect]
     Indication: RHEUMATOID ARTHRITIS
     Dosage: 50MG QW SQ
     Route: 058
     Dates: start: 20111209, end: 20120102

REACTIONS (3)
  - DIARRHOEA [None]
  - VOMITING [None]
  - HEADACHE [None]
